FAERS Safety Report 19458856 (Version 1)
Quarter: 2021Q2

REPORT INFORMATION
  Report Type: Spontaneous
  Country: US (occurrence: US)
  Receive Date: 20210624
  Receipt Date: 20210624
  Transmission Date: 20210717
  Serious: No
  Sender: FDA-Public Use
  Company Number: US-MYLANLABS-2021M1035614

PATIENT
  Sex: Female
  Weight: 54 kg

DRUGS (2)
  1. XULANE [Suspect]
     Active Substance: ETHINYL ESTRADIOL\NORELGESTROMIN
     Indication: ENDOMETRIOSIS
  2. XULANE [Suspect]
     Active Substance: ETHINYL ESTRADIOL\NORELGESTROMIN
     Indication: CONTRACEPTION
     Dosage: 150/35 MICROGRAM, ONE PATCH EVERY WEEK FOR 3 WEEKS, THEN OFF FOR ONE WEEK
     Route: 062

REACTIONS (4)
  - Wrong technique in product usage process [Not Recovered/Not Resolved]
  - Product adhesion issue [Not Recovered/Not Resolved]
  - Product quality issue [Not Recovered/Not Resolved]
  - Off label use [Not Recovered/Not Resolved]
